FAERS Safety Report 25689388 (Version 1)
Quarter: 2025Q3

REPORT INFORMATION
  Report Type: Spontaneous
  Country: US (occurrence: US)
  Receive Date: 20250818
  Receipt Date: 20250818
  Transmission Date: 20251021
  Serious: Yes (Other)
  Sender: AUROBINDO
  Company Number: US-AUROBINDO-AUR-APL-2025-042121

PATIENT
  Age: 68 Year
  Sex: Male

DRUGS (1)
  1. MYCOPHENOLIC ACID [Suspect]
     Active Substance: MYCOPHENOLIC ACID
     Indication: Iridocyclitis
     Route: 065

REACTIONS (1)
  - Infectious crystalline keratopathy [Recovered/Resolved]
